FAERS Safety Report 8819795 (Version 2)
Quarter: 2014Q3

REPORT INFORMATION
  Report Type: Report from Study
  Country: US (occurrence: US)
  Receive Date: 20121001
  Receipt Date: 20140922
  Transmission Date: 20150326
  Serious: Yes (Hospitalization, Other)
  Sender: FDA-Public Use
  Company Number: US-ROCHE-1125826

PATIENT
  Sex: Female

DRUGS (13)
  1. TAXOTERE [Concomitant]
     Active Substance: DOCETAXEL
     Route: 065
     Dates: start: 20010222
  2. PREMARIN [Concomitant]
     Active Substance: ESTROGENS, CONJUGATED
  3. ALLEGRA [Concomitant]
     Active Substance: FEXOFENADINE HYDROCHLORIDE
  4. PRILOSEC [Concomitant]
     Active Substance: OMEPRAZOLE MAGNESIUM
  5. HERCEPTIN [Suspect]
     Active Substance: TRASTUZUMAB
     Indication: MALIGNANT RESPIRATORY TRACT NEOPLASM
     Dosage: MAINTENANCE DOSE
     Route: 042
     Dates: start: 20010222
  6. ATIVAN [Concomitant]
     Active Substance: LORAZEPAM
     Indication: NAUSEA
  7. DECADRON [Concomitant]
     Active Substance: DEXAMETHASONE
  8. PROVERA [Concomitant]
     Active Substance: MEDROXYPROGESTERONE ACETATE
  9. HERCEPTIN [Suspect]
     Active Substance: TRASTUZUMAB
     Indication: NON-SMALL CELL LUNG CANCER
     Dosage: LOADING DOSE?VIAL SIZE: 440MG
     Route: 042
     Dates: start: 20010222
  10. AVALIDE [Concomitant]
     Active Substance: HYDROCHLOROTHIAZIDE\IRBESARTAN
  11. IRESSA [Concomitant]
     Active Substance: GEFITINIB
     Route: 065
  12. ATROPIN [Concomitant]
     Route: 042
  13. ATENOLOL. [Concomitant]
     Active Substance: ATENOLOL

REACTIONS (16)
  - Alopecia [Unknown]
  - Mediastinal disorder [Unknown]
  - Fatigue [Unknown]
  - Decreased appetite [Unknown]
  - Pain [Unknown]
  - Insomnia [Unknown]
  - Pneumonia [Recovering/Resolving]
  - Dyspnoea [Unknown]
  - Anaemia [Unknown]
  - Hyponatraemia [Unknown]
  - Diarrhoea [Unknown]
  - Pleural effusion [Unknown]
  - Nausea [Unknown]
  - Vocal cord paralysis [Recovered/Resolved]
  - Tinnitus [Unknown]
  - Off label use [Unknown]
